FAERS Safety Report 19959254 (Version 1)
Quarter: 2021Q4

REPORT INFORMATION
  Report Type: Spontaneous
  Country: US (occurrence: US)
  Receive Date: 20211013
  Receipt Date: 20211013
  Transmission Date: 20220303
  Serious: Yes (Life-Threatening, Hospitalization)
  Sender: FDA-Public Use
  Company Number: None

PATIENT
  Age: 84 Year
  Sex: Male
  Weight: 99 kg

DRUGS (1)
  1. LISINOPRIL [Suspect]
     Active Substance: LISINOPRIL
     Route: 011
     Dates: start: 20100721, end: 20210826

REACTIONS (12)
  - Dyspnoea [None]
  - Throat tightness [None]
  - Road traffic accident [None]
  - Head injury [None]
  - Neck pain [None]
  - Dysphagia [None]
  - Dysphonia [None]
  - Acute respiratory failure [None]
  - Angioedema [None]
  - Cardio-respiratory arrest [None]
  - Pulse absent [None]
  - Cardio-respiratory arrest [None]

NARRATIVE: CASE EVENT DATE: 20210826
